FAERS Safety Report 17891838 (Version 1)
Quarter: 2020Q2

REPORT INFORMATION
  Report Type: Spontaneous
  Country: ES (occurrence: ES)
  Receive Date: 20200612
  Receipt Date: 20200612
  Transmission Date: 20200714
  Serious: Yes (Life-Threatening, Other)
  Sender: FDA-Public Use
  Company Number: ES-GLAXOSMITHKLINE-ES2020098093

PATIENT
  Age: 64 Year
  Sex: Male

DRUGS (10)
  1. PREDNISONE. [Interacting]
     Active Substance: PREDNISONE
     Indication: HEART TRANSPLANT
     Dosage: 2.5 MG, QD
     Route: 048
     Dates: start: 20170419
  2. PICATO [Interacting]
     Active Substance: INGENOL MEBUTATE
     Dosage: 3 SINGLE-DOSE TUBES OF 0.47 G
     Route: 061
     Dates: start: 20190403, end: 20190405
  3. MYCOPHENOLATE MOFETIL. [Interacting]
     Active Substance: MYCOPHENOLATE MOFETIL
     Indication: HEART TRANSPLANT
     Dosage: 500 MG, BID
     Route: 048
     Dates: start: 20170419
  4. ADVAGRAF [Interacting]
     Active Substance: TACROLIMUS
     Indication: HEART TRANSPLANT
     Dosage: 2 MG, QD, 60 HARD CAPSULES
     Route: 048
     Dates: start: 20170419
  5. PARACETAMOL [Concomitant]
     Active Substance: ACETAMINOPHEN
     Indication: PRODUCT USED FOR UNKNOWN INDICATION
     Dosage: 1000 MG, TID
     Route: 048
     Dates: start: 20170419
  6. PRAVASTATINE [Concomitant]
     Active Substance: PRAVASTATIN
     Indication: DYSLIPIDAEMIA
     Dosage: 20 MG, QD
     Route: 048
     Dates: start: 20170419
  7. PICATO [Interacting]
     Active Substance: INGENOL MEBUTATE
     Indication: ACTINIC KERATOSIS
     Dosage: 3 SINGLE-DOSE TUBES OF 0.47 G
     Route: 061
     Dates: start: 20181231, end: 20190102
  8. OMEPRAZOL [Concomitant]
     Active Substance: OMEPRAZOLE
     Indication: PRODUCT USED FOR UNKNOWN INDICATION
     Dosage: 20 MG, QD
     Route: 048
     Dates: start: 20170419
  9. MUPIROCIN. [Suspect]
     Active Substance: MUPIROCIN
     Indication: ACTINIC KERATOSIS
     Dosage: UNK
     Route: 061
     Dates: start: 20181231
  10. FOLIC ACID. [Concomitant]
     Active Substance: FOLIC ACID
     Indication: HEART TRANSPLANT
     Dosage: 5 MG, QD
     Route: 048
     Dates: start: 20170419

REACTIONS (2)
  - Drug interaction [Unknown]
  - Squamous cell carcinoma [Not Recovered/Not Resolved]

NARRATIVE: CASE EVENT DATE: 201906
